FAERS Safety Report 9705141 (Version 3)
Quarter: 2014Q2

REPORT INFORMATION
  Report Type: Spontaneous
  Country: US (occurrence: US)
  Receive Date: 20131122
  Receipt Date: 20140627
  Transmission Date: 20141212
  Serious: Yes (Life-Threatening, Hospitalization, Other)
  Sender: FDA-Public Use
  Company Number: US-BAYER-2013-140204

PATIENT
  Age: 31 Year
  Sex: Female
  Weight: 56.69 kg

DRUGS (6)
  1. MIRENA [Suspect]
     Indication: CONTRACEPTION
     Dosage: 20 MCG/24HR, CONT
     Route: 015
     Dates: start: 20070914, end: 200801
  2. ATENOLOL [Concomitant]
     Indication: HEADACHE
     Dosage: 25 MG, UNK
     Route: 048
     Dates: start: 2006
  3. CYMBALTA [Concomitant]
     Dosage: UNK
     Route: 048
     Dates: start: 200707, end: 201307
  4. LIDODERM [Concomitant]
     Dosage: UNK
     Route: 061
     Dates: start: 200707, end: 201307
  5. FIORICET [Concomitant]
     Indication: HEADACHE
     Dosage: UNK
     Route: 048
     Dates: start: 200709, end: 201007
  6. RELPAX [Concomitant]
     Dosage: 40 MG, UNK
     Route: 048
     Dates: start: 20071129

REACTIONS (16)
  - Embedded device [None]
  - Pelvic pain [None]
  - Nerve injury [None]
  - Infertility female [None]
  - Injury [None]
  - Emotional distress [None]
  - Abdominal pain lower [None]
  - General physical health deterioration [None]
  - Anxiety [None]
  - Anhedonia [None]
  - Device defective [None]
  - Uterine disorder [None]
  - Adenomyosis [None]
  - Pain [None]
  - Genital haemorrhage [None]
  - Pain [None]
